FAERS Safety Report 7640955-5 (Version None)
Quarter: 2011Q3

REPORT INFORMATION
  Report Type: 
  Country: None (occurrence: None)
  Receive Date: 20110728
  Receipt Date: 20110722
  Transmission Date: 20111222
  Serious: Yes (Hospitalization, Other)
  Sender: FDA-Public Use
  Company Number: US-BAYER-2011-064016

PATIENT
  Sex: Female

DRUGS (2)
  1. YAZ [Suspect]
     Indication: MENORRHAGIA
     Dosage: UNK
     Route: 048
     Dates: start: 20080101
  2. YAZ [Suspect]
     Indication: ACNE

REACTIONS (5)
  - DYSMENORRHOEA [None]
  - METRORRHAGIA [None]
  - MENORRHAGIA [None]
  - ANAEMIA [None]
  - ACNE [None]
